FAERS Safety Report 6161265-1 (Version None)
Quarter: 2009Q2

REPORT INFORMATION
  Report Type: 
  Country: None (occurrence: None)
  Receive Date: 20090417
  Receipt Date: 20090417
  Transmission Date: 20091009
  Serious: Yes (Hospitalization)
  Sender: FDA-Public Use
  Company Number: None

PATIENT
  Sex: Female
  Weight: 63.5 kg

DRUGS (8)
  1. CISPLATIN [Suspect]
     Dosage: 70 MG
  2. DILAUDID [Concomitant]
  3. INSULIN [Concomitant]
  4. LANTUS [Concomitant]
  5. TIMETIN [Concomitant]
  6. ZESTRIL [Concomitant]
  7. LOPRESSOR [Concomitant]
  8. PERCOCET [Concomitant]

REACTIONS (3)
  - BLOOD POTASSIUM INCREASED [None]
  - NEOPLASM [None]
  - VULVAL DISORDER [None]
